FAERS Safety Report 8470309-3 (Version None)
Quarter: 2012Q2

REPORT INFORMATION
  Report Type: 
  Country: None (occurrence: None)
  Receive Date: 20120627
  Receipt Date: 20120622
  Transmission Date: 20120825
  Serious: No
  Sender: FDA-Public Use
  Company Number: US-PFIZER INC-2012151296

PATIENT
  Sex: Female

DRUGS (1)
  1. PRISTIQ [Suspect]
     Dosage: 50 MG, 1X/DAY

REACTIONS (5)
  - FEELING DRUNK [None]
  - VOMITING [None]
  - PARAESTHESIA [None]
  - VISION BLURRED [None]
  - TINNITUS [None]
